FAERS Safety Report 23089120 (Version 1)
Quarter: 2023Q4

REPORT INFORMATION
  Report Type: Spontaneous
  Country: US (occurrence: None)
  Receive Date: 20231019
  Receipt Date: 20231019
  Transmission Date: 20240110
  Serious: Yes (Hospitalization)
  Sender: FDA-Public Use
  Company Number: None

PATIENT
  Sex: Male

DRUGS (18)
  1. CREON [Suspect]
     Active Substance: PANCRELIPASE AMYLASE\PANCRELIPASE LIPASE\PANCRELIPASE PROTEASE
     Indication: Cystic fibrosis
     Dosage: OTHER QUANTITY : 2400-76000UNKNOWN;?
     Route: 046
     Dates: start: 20210609
  2. AMOKK CLAV SUS [Concomitant]
  3. BUDESONIDE SUS [Concomitant]
  4. CEFDINIR SUS [Concomitant]
  5. COMPLETE FORM D3000 SOFTGEL [Concomitant]
  6. COMPLETE FORM SOFTGEL [Concomitant]
  7. HYDROCO/APAP SOL [Concomitant]
  8. MVW COMPLETE CAP D3000 [Concomitant]
  9. NEO/POLY/HC SUS OTIC [Concomitant]
  10. OFLOXACIN DRO [Concomitant]
  11. PANCRECARB CAP MS-4 [Concomitant]
  12. PEPCID SUS [Concomitant]
  13. PREVACID TAB [Concomitant]
  14. PULMOZYME SOL [Concomitant]
  15. Q-DRYL LIQ [Concomitant]
  16. SODIUM CHLORIDE [Concomitant]
     Active Substance: SODIUM CHLORIDE
  17. SODIUM CHLOR NEB [Concomitant]
  18. VUSION OIN [Concomitant]

REACTIONS (1)
  - Cystic fibrosis [None]
